FAERS Safety Report 10200472 (Version 1)
Quarter: 2014Q2

REPORT INFORMATION
  Report Type: Spontaneous
  Country: US (occurrence: US)
  Receive Date: 20140528
  Receipt Date: 20140528
  Transmission Date: 20141212
  Serious: Yes (Death)
  Sender: FDA-Public Use
  Company Number: US-BEH-2014042702

PATIENT
  Age: 61 Year
  Sex: Male
  Weight: 83 kg

DRUGS (20)
  1. ZEMAIRA [Suspect]
     Indication: CHRONIC OBSTRUCTIVE PULMONARY DISEASE
     Route: 042
  2. ZEMAIRA [Suspect]
     Indication: CHRONIC OBSTRUCTIVE PULMONARY DISEASE
     Route: 042
  3. DIPHENHYDRAMINE [Concomitant]
  4. HEPARIN [Concomitant]
  5. LIDOCAINE/PRILOCAINE [Concomitant]
  6. SODIUM CHLORIDE [Concomitant]
  7. EPI PEN [Concomitant]
  8. NICOTINE [Concomitant]
  9. ATENOLOL [Concomitant]
  10. ASPIRIN [Concomitant]
  11. OXYGEN [Concomitant]
  12. CELEBREX [Concomitant]
  13. MORPHINE [Concomitant]
  14. LYRICA [Concomitant]
  15. SIMVASTATIN [Concomitant]
  16. OPANA [Concomitant]
  17. BUPROPION [Concomitant]
  18. BROVANA [Concomitant]
  19. CYCLOBENZAPRINE [Concomitant]
  20. GABAPENTIN [Concomitant]

REACTIONS (1)
  - Death [Fatal]
